FAERS Safety Report 5163910-6 (Version None)
Quarter: 2006Q4

REPORT INFORMATION
  Report Type: 
  Country: None (occurrence: None)
  Receive Date: 20061124
  Receipt Date: 20061109
  Transmission Date: 20070319
  Serious: Yes (Death)
  Sender: FDA-Public Use
  Company Number: 2006140545

PATIENT
  Age: 58 Year

DRUGS (4)
  1. LOMOTIL [Suspect]
     Dosage: ORAL
     Route: 048
     Dates: end: 20050101
  2. ACETAMINOPHEN AND HYDROCODONE BITARTRATE [Suspect]
     Dosage: ORAL
     Route: 048
     Dates: end: 20050101
  3. CLOPIDOGREL [Suspect]
     Dosage: ORAL
     Route: 048
     Dates: end: 20050101
  4. ALL OTHER THERAPEUTIC PRODUCTS (ALL OTHER THERAPEUTIC PRODUCTS) [Suspect]
     Dates: end: 20050101

REACTIONS (1)
  - COMPLETED SUICIDE [None]
